FAERS Safety Report 23643892 (Version 1)
Quarter: 2024Q1

REPORT INFORMATION
  Report Type: Spontaneous
  Country: US (occurrence: None)
  Receive Date: 20240318
  Receipt Date: 20240318
  Transmission Date: 20240410
  Serious: No
  Sender: FDA-Public Use
  Company Number: None

PATIENT
  Age: 68 Year
  Sex: Female

DRUGS (31)
  1. COTELLIC [Suspect]
     Active Substance: COBIMETINIB
     Indication: Histiocytosis
     Dosage: FREQUENCY : DAILY;?
     Route: 048
     Dates: start: 20240220
  2. ATENOLOL [Concomitant]
  3. AZITHROMYCIN [Concomitant]
  4. BETAMETHASONE DIP [Concomitant]
  5. BUSPIRONE [Concomitant]
  6. CLOBETASOL PROP [Concomitant]
  7. CLONAZEPAM [Concomitant]
  8. CLOTRIMAZOLE LOZENGE [Concomitant]
  9. COTELLIC [Concomitant]
  10. DOXYCYCLINE MONOHYDRATE [Concomitant]
  11. FLUCONAZOLE [Concomitant]
  12. FLUZONE HD 65+ PF INJ [Concomitant]
  13. GABAPENTIN CAPSULES [Concomitant]
  14. HYDROCORTISONE 1% CREAM [Concomitant]
  15. IVERMECTIN 1% CREAM [Concomitant]
  16. levalbuterol hfa inh [Concomitant]
  17. MECLIZINE 25MG RX [Concomitant]
  18. METHOCARBAMOL TABLETS [Concomitant]
  19. MUPIROCIN 2% CREAM 15GM [Concomitant]
  20. OXYCODONE  5MG [Concomitant]
  21. OXYCODONE/ACETAMINOPHEN [Concomitant]
  22. RIZATRIPTAN TABLETS [Concomitant]
  23. TIZANIDINE TABLETS [Concomitant]
  24. TRAZODONE [Concomitant]
  25. TRIAMCINOLONE 0.1% OINTMENT [Concomitant]
  26. TRIAMTERENE [Concomitant]
  27. ACETAMINOPHEN 500MG [Concomitant]
  28. COMPAZINE 10MG TABLETS [Concomitant]
  29. DEXTROMETHORPHA N ER [Concomitant]
  30. DOXYLAMINE SUCCINATE POWDER [Concomitant]
  31. PHENYLEPHRINE HCL POWDER [Concomitant]

REACTIONS (1)
  - Dry skin [None]

NARRATIVE: CASE EVENT DATE: 20240301
